FAERS Safety Report 4669568-4 (Version None)
Quarter: 2005Q2

REPORT INFORMATION
  Report Type: 
  Country: None (occurrence: None)
  Receive Date: 20050523
  Receipt Date: 20050314
  Transmission Date: 20051028
  Serious: Yes (Death, Other)
  Sender: FDA-Public Use
  Company Number: PHEH2005US05351

PATIENT
  Age: 72 Year
  Sex: Male
  Weight: 74 kg

DRUGS (1)
  1. CYCLOSPORINE [Suspect]
     Indication: LIVER TRANSPLANT

REACTIONS (3)
  - CARDIAC ARREST [None]
  - NEPHROPATHY TOXIC [None]
  - RENAL FAILURE [None]
